FAERS Safety Report 8778643 (Version 3)
Quarter: 2012Q4

REPORT INFORMATION
  Report Type: 
  Country: US (occurrence: US)
  Receive Date: 20120913
  Receipt Date: 20121128
  Transmission Date: 20130627
  Serious: No
  Sender: FDA-Public Use
  Company Number: US-PFIZER INC-2012224001

PATIENT
  Age: 43 Year
  Sex: Female
  Weight: 77.1 kg

DRUGS (1)
  1. DILANTIN [Suspect]
     Indication: SEIZURES
     Dosage: 100 mg, 3x/day
     Dates: start: 1992

REACTIONS (1)
  - Anticonvulsant drug level below therapeutic [Unknown]
